FAERS Safety Report 8417548-5 (Version None)
Quarter: 2012Q2

REPORT INFORMATION
  Report Type: 
  Country: None (occurrence: None)
  Receive Date: 20120606
  Receipt Date: 20120529
  Transmission Date: 20120825
  Serious: Yes (Hospitalization)
  Sender: FDA-Public Use
  Company Number: CN-TEVA-340518ISR

PATIENT
  Sex: Male
  Weight: 75 kg

DRUGS (9)
  1. ASPIRIN [Concomitant]
     Indication: THROMBOSIS PROPHYLAXIS
     Dosage: 100 MILLIGRAM;
     Route: 048
     Dates: start: 20110114
  2. ISOSORBIDE DINITRATE [Concomitant]
     Indication: CHEST DISCOMFORT
     Route: 042
     Dates: start: 20120423, end: 20120502
  3. LENALIDOMIDE [Suspect]
     Dosage: 25 MILLIGRAM;
     Route: 048
     Dates: start: 20120329, end: 20120416
  4. ISOSORBIDE DINITRATE [Concomitant]
     Indication: CORONARY ARTERY DISEASE
     Dosage: 80 MILLIGRAM;
     Route: 048
     Dates: start: 20080101
  5. LENALIDOMIDE [Suspect]
     Indication: MULTIPLE MYELOMA
     Dosage: 15 MILLIGRAM;
     Route: 048
     Dates: start: 20110121
  6. NIFEDIPINE [Concomitant]
     Indication: HYPERTENSION
     Dosage: 30 MILLIGRAM;
     Route: 048
     Dates: start: 19800101
  7. IRBESARTAN + HYDROCHLOROTHIAZIDE [Concomitant]
     Indication: HYPERTENSION
     Route: 048
  8. DEXAMETHASONE [Suspect]
     Indication: MULTIPLE MYELOMA
     Dosage: 40 MILLIGRAM;
     Dates: start: 20110121
  9. DEXAMETHASONE [Suspect]
     Dosage: 40 MILLIGRAM;
     Dates: start: 20120329, end: 20120416

REACTIONS (1)
  - CHEST DISCOMFORT [None]
